FAERS Safety Report 23439541 (Version 2)
Quarter: 2024Q1

REPORT INFORMATION
  Report Type: Spontaneous
  Country: GB (occurrence: GB)
  Receive Date: 20240124
  Receipt Date: 20240207
  Transmission Date: 20240410
  Serious: Yes (Death, Hospitalization, Other)
  Sender: FDA-Public Use
  Company Number: GB-CLINIGEN-GB-CLI-2023-043384

PATIENT
  Age: 55 Year
  Sex: Male
  Weight: 72.8 kg

DRUGS (94)
  1. FLUDARABINE [Suspect]
     Active Substance: FLUDARABINE PHOSPHATE
     Indication: Metastatic malignant melanoma
     Dosage: 55 MILLIGRAM, QD
     Route: 050
     Dates: start: 20230816, end: 20230818
  2. ATENOLOL [Suspect]
     Active Substance: ATENOLOL
     Indication: Metastatic malignant melanoma
     Dosage: UNK
     Route: 050
     Dates: start: 20230822, end: 20230822
  3. UNSPECIFIED INGREDIENT [Concomitant]
     Active Substance: UNSPECIFIED INGREDIENT
     Indication: Nutritional supplementation
     Dosage: 1 BOTTLE; DURATION: 7 DAYS
     Route: 065
     Dates: start: 20230907, end: 20230913
  4. ACYCLOVIR [Concomitant]
     Active Substance: ACYCLOVIR
     Indication: Prophylaxis
     Dosage: 400 MG, BID, DURATION: 27 DAYS
     Route: 050
     Dates: start: 20230816, end: 20230911
  5. AMLODIPINE [Concomitant]
     Active Substance: AMLODIPINE BESYLATE
     Indication: Hypertension
     Dosage: 10 MG, QD
     Route: 050
     Dates: start: 20230907, end: 20230928
  6. AMLODIPINE [Concomitant]
     Active Substance: AMLODIPINE BESYLATE
     Indication: Hypertension
     Dosage: 5 MG, QD
     Route: 050
     Dates: start: 20230902, end: 20230907
  7. MORPHINE SULFATE [Concomitant]
     Active Substance: MORPHINE SULFATE
     Indication: Pain
     Dosage: TIME INTERVAL: AS NECESSARY: 5 MG, PRN, DURATION: 585 DAYS
     Route: 050
     Dates: start: 20220303, end: 20231005
  8. PIPERACILLIN AND TAZOBACTAM [Concomitant]
     Active Substance: PIPERACILLIN SODIUM\TAZOBACTAM SODIUM
     Indication: Lower respiratory tract infection
     Dosage: 18 MG (4MG 4 TIMES A DAY);
     Dates: start: 20230824, end: 20230831
  9. PIPERACILLIN AND TAZOBACTAM [Concomitant]
     Active Substance: PIPERACILLIN SODIUM\TAZOBACTAM SODIUM
     Indication: Lower respiratory tract infection
     Dosage: 4MG 4 TIMES A DAY), DURATION: 8 DAYS
     Route: 050
     Dates: start: 20230824, end: 20230831
  10. HYDROCORTISONE [Concomitant]
     Active Substance: HYDROCORTISONE
     Indication: Adrenal insufficiency
     Dosage: 20/10/2010 MG
     Route: 050
     Dates: start: 20230601, end: 20230911
  11. HYDROCORTISONE [Concomitant]
     Active Substance: HYDROCORTISONE
     Indication: Adrenal insufficiency
     Dosage: 10/05/2005 MG
     Route: 050
  12. HYDROCORTISONE [Concomitant]
     Active Substance: HYDROCORTISONE
     Indication: Adrenal insufficiency
     Dosage: 20,10,10MG (20MG OM,10MG LUNCH AND EVENING); ;
     Route: 050
     Dates: start: 20230601
  13. HYDROCORTISONE [Concomitant]
     Active Substance: HYDROCORTISONE
     Indication: Adrenal insufficiency
     Dosage: 10/05/2005 MG;
  14. HUMAN RED BLOOD CELL [Concomitant]
     Active Substance: HUMAN RED BLOOD CELL
     Indication: Fatigue
     Dosage: 1 -2 UNIT ONCE
     Route: 050
     Dates: start: 20230814, end: 20230821
  15. LEVOTHYROXINE [Concomitant]
     Active Substance: LEVOTHYROXINE\LEVOTHYROXINE SODIUM
     Indication: Hyperthyroidism
     Dosage: 125 MG, QD
     Route: 050
     Dates: start: 20200101, end: 20230928
  16. ONDANSETRON [Concomitant]
     Active Substance: ONDANSETRON
     Indication: Illness
     Dosage: 16 MG, QD
     Route: 042
     Dates: start: 20230816, end: 20230901
  17. ONDANSETRON [Concomitant]
     Active Substance: ONDANSETRON
     Indication: Illness
     Dosage: 16 MG, QD, DURATION: 17 DAYS
     Route: 048
     Dates: start: 20230816, end: 20230901
  18. FLUCONAZOLE [Concomitant]
     Active Substance: FLUCONAZOLE
     Indication: Prophylaxis
     Dosage: 100 MG;
     Route: 050
     Dates: start: 20230816, end: 20230908
  19. SODIUM PHOSPHATE [Concomitant]
     Active Substance: SODIUM PHOSPHATE
     Indication: Blood phosphorus decreased
     Dosage: TIME INTERVAL: 0.33333333 DAYS: 32.2 MMOL, TID
     Route: 050
     Dates: start: 20230823, end: 20230824
  20. AMOXICILLIN\CLAVULANATE POTASSIUM [Concomitant]
     Active Substance: AMOXICILLIN\CLAVULANATE POTASSIUM
     Indication: C-reactive protein increased
     Dosage: 3600 MG, TIW
     Route: 050
     Dates: start: 20230818, end: 20230823
  21. AMOXICILLIN\CLAVULANATE POTASSIUM [Concomitant]
     Active Substance: AMOXICILLIN\CLAVULANATE POTASSIUM
     Indication: C-reactive protein increased
     Dosage: 625 MG,2 X 625 MG THEN SWITCHED TO IV
     Route: 050
     Dates: start: 20230817, end: 20230818
  22. CIPROFLOXACIN [Concomitant]
     Active Substance: CIPROFLOXACIN
     Indication: Infection
     Dosage: 500 MILLIGRAM, BID
     Route: 050
     Dates: start: 20230831, end: 20230905
  23. AMILORIDE [Concomitant]
     Active Substance: AMILORIDE
     Indication: Hypokalaemia
     Dosage: 10 MG, QD
     Route: 050
     Dates: start: 20230908, end: 20230924
  24. AMILORIDE [Concomitant]
     Active Substance: AMILORIDE
     Indication: Hypokalaemia
     Dosage: 5 GM
     Route: 050
     Dates: start: 20230831, end: 20230906
  25. IRON ISOMALTOSIDE 1000 [Concomitant]
     Active Substance: IRON ISOMALTOSIDE 1000
     Indication: Anaemia
     Dosage: 1000 MG; DURATION: 93 DAYS
     Dates: start: 20230531, end: 20230831
  26. PLATELETS [Concomitant]
     Active Substance: HUMAN PLATELET, ALLOGENIC
     Indication: Platelet count decreased
     Dosage: TIME INTERVAL: 1 TOTAL: 1 DOSAGE FORM, ONCE/SINGLE, DURATION: 1 DAYS
     Route: 050
     Dates: start: 20230907, end: 20230909
  27. PLATELETS [Concomitant]
     Active Substance: HUMAN PLATELET, ALLOGENIC
     Indication: Platelet count decreased
     Dosage: 1 POOL ONCE; ;
     Dates: start: 20230908, end: 20230908
  28. PLATELETS [Concomitant]
     Active Substance: HUMAN PLATELET, ALLOGENIC
     Indication: Platelet count decreased
     Dosage: 1 POOL ONCE; ;
     Dates: start: 20230901, end: 20230901
  29. PLATELETS [Concomitant]
     Active Substance: HUMAN PLATELET, ALLOGENIC
     Indication: Platelet count decreased
     Dosage: 1 POOL ONCE; ;
     Dates: start: 20230906, end: 20230906
  30. PLATELETS [Concomitant]
     Active Substance: HUMAN PLATELET, ALLOGENIC
     Indication: Platelet count decreased
     Dosage: 1 POOL ONCE; ;
     Dates: start: 20230830, end: 20230830
  31. PLATELETS [Concomitant]
     Active Substance: HUMAN PLATELET, ALLOGENIC
     Indication: Platelet count decreased
     Dosage: 1 POOL ONCE; ;
     Dates: start: 20230829, end: 20230829
  32. PLATELETS [Concomitant]
     Active Substance: HUMAN PLATELET, ALLOGENIC
     Indication: Platelet count decreased
     Dosage: 2 POOLS ONCE; ;
     Dates: start: 20230831, end: 20230831
  33. PLATELETS [Concomitant]
     Active Substance: HUMAN PLATELET, ALLOGENIC
     Indication: Platelet count decreased
     Dosage: 1 POOL ONCE; ;
     Dates: start: 20230909, end: 20230909
  34. PLATELETS [Concomitant]
     Active Substance: HUMAN PLATELET, ALLOGENIC
     Indication: Platelet count decreased
     Dosage: 1 POOL ONCE; ;
     Dates: start: 20230908, end: 20230908
  35. PLATELETS [Concomitant]
     Active Substance: HUMAN PLATELET, ALLOGENIC
     Indication: Platelet count decreased
     Dosage: 1 POOL ONCE; ;
     Dates: start: 20230907, end: 20230907
  36. PLATELETS [Concomitant]
     Active Substance: HUMAN PLATELET, ALLOGENIC
     Indication: Platelet count decreased
     Dosage: 1 POOL ONCE; ;
     Dates: start: 20230909, end: 20230909
  37. CALCIUM CARBONATE\CHOLECALCIFEROL [Concomitant]
     Active Substance: CALCIUM CARBONATE\CHOLECALCIFEROL
     Indication: Hypocalcaemia
     Dosage: UNK (3000/800 UNITS)
     Route: 065
     Dates: start: 20230822, end: 20230823
  38. NIVOLUMAB [Suspect]
     Active Substance: NIVOLUMAB
     Indication: Metastatic malignant melanoma
     Dosage: 240 MG, DURATION: 1 DAYS
     Route: 050
     Dates: start: 20230815, end: 20230815
  39. CHLORPHENIRAMINE MALEATE [Concomitant]
     Active Substance: CHLORPHENIRAMINE MALEATE
     Indication: Premedication
     Dosage: 10 MG
     Route: 050
     Dates: start: 20230822, end: 20230822
  40. CHOLECALCIFEROL [Concomitant]
     Active Substance: CHOLECALCIFEROL
     Indication: Supplementation therapy
     Dosage: UNK UNK, QD (800 IU)
     Route: 050
     Dates: start: 20200101
  41. CHOLECALCIFEROL [Concomitant]
     Active Substance: CHOLECALCIFEROL
     Indication: Supplementation therapy
     Dosage: UNK (800 IU), DURATION: 1362 DAYS
     Route: 050
     Dates: start: 20200101, end: 20230923
  42. POTASSIUM CHLORIDE [Concomitant]
     Active Substance: POTASSIUM CHLORIDE
     Indication: Product used for unknown indication
     Dosage: 600 MG, BID
     Route: 050
     Dates: start: 20230908, end: 20230912
  43. POTASSIUM CHLORIDE [Concomitant]
     Active Substance: POTASSIUM CHLORIDE
     Indication: Product used for unknown indication
     Dosage: 6 GM
     Route: 050
     Dates: start: 20230830, end: 20230830
  44. AZITHROMYCIN [Concomitant]
     Active Substance: AZITHROMYCIN
     Indication: Prophylaxis
     Dosage: 1500 MG, TIW
     Route: 050
     Dates: start: 20230830, end: 20230927
  45. FUROSEMIDE [Concomitant]
     Active Substance: FUROSEMIDE
     Indication: Pulmonary oedema
     Dosage: 40 MG;
     Route: 050
     Dates: start: 20230827, end: 20230827
  46. FUROSEMIDE [Concomitant]
     Active Substance: FUROSEMIDE
     Indication: Pulmonary oedema
     Dosage: 20 MG;
     Route: 050
     Dates: start: 20230820, end: 20230820
  47. FUROSEMIDE [Concomitant]
     Active Substance: FUROSEMIDE
     Indication: Pulmonary oedema
     Dosage: 400 MG;
     Route: 050
     Dates: start: 20230817, end: 20230817
  48. FUROSEMIDE [Concomitant]
     Active Substance: FUROSEMIDE
     Indication: Pulmonary oedema
     Dosage: 40 MG;
     Route: 050
     Dates: start: 20230904, end: 20230906
  49. FUROSEMIDE [Concomitant]
     Active Substance: FUROSEMIDE
     Indication: Pulmonary oedema
     Dosage: 40 MG;
     Route: 050
     Dates: start: 20230829, end: 20230901
  50. MOVICOL [Concomitant]
     Active Substance: POLYETHYLENE GLYCOL 3350\POTASSIUM CHLORIDE\SODIUM BICARBONATE\SODIUM CHLORIDE
     Indication: Constipation
     Dosage: TIME INTERVAL: AS NECESSARY: 1 SACHET, DURATION: 49 DAYS
     Route: 050
     Dates: start: 20230814, end: 20231001
  51. UNSPECIFIED INGREDIENT [Concomitant]
     Active Substance: UNSPECIFIED INGREDIENT
     Indication: Blood phosphorus decreased
     Dosage: 32.2 MILLIMOLE, TID , SANDOZ EFFERVESCENT
     Dates: start: 20230823, end: 20230824
  52. COTRIMOXAZOLE [Concomitant]
     Active Substance: SULFAMETHOXAZOLE\TRIMETHOPRIM
     Indication: Atypical pneumonia
     Dosage: 960 MG, BIW
     Route: 065
     Dates: start: 20230816, end: 20230817
  53. COTRIMOXAZOLE [Concomitant]
     Active Substance: SULFAMETHOXAZOLE\TRIMETHOPRIM
     Indication: Atypical pneumonia
     Dosage: UNK (WEEKLY)
     Route: 065
     Dates: start: 20230817, end: 20230829
  54. TAUROLIDINE [Concomitant]
     Active Substance: TAUROLIDINE
     Indication: Prophylaxis
     Dosage: TIME INTERVAL: AS NECESSARY: 500 INTERNATIONAL UNIT.
     Route: 050
     Dates: start: 20230822
  55. MORPHINE [Concomitant]
     Active Substance: MORPHINE
     Indication: Pain
     Dosage: 5 MG, BID, DURATION: 575 DAYS
     Route: 050
     Dates: start: 20220303, end: 20230928
  56. SANDO-K [Concomitant]
     Indication: Hypokalaemia
     Dosage: 24 MILLIMOLE, TID
     Route: 065
     Dates: start: 20230816, end: 20230820
  57. SANDO-K [Concomitant]
     Indication: Hypokalaemia
     Dosage: TIME INTERVAL: 0.33333333 DAYS: 24 MMOL, TID, DURATION: 16 DAYS
     Route: 050
     Dates: start: 20230816, end: 20230901
  58. SANDO-K [Concomitant]
     Indication: Hypokalaemia
     Dosage: 24 MILLIMOLE, TID
     Dates: start: 20230822, end: 20230825
  59. SANDO-K [Concomitant]
     Indication: Hypokalaemia
     Dosage: 24 MILLIMOLE, TID
     Dates: start: 20230829, end: 20230901
  60. ALDESLEUKIN [Suspect]
     Active Substance: ALDESLEUKIN
     Indication: Metastatic malignant melanoma
     Dosage: 1.86 MILLION INTERNATIONAL UNIT. DURATION: 8 DAYS
     Route: 050
     Dates: start: 20230822, end: 20230829
  61. ALDESLEUKIN [Suspect]
     Active Substance: ALDESLEUKIN
     Indication: Metastatic malignant melanoma
     Dosage: 1.9 MILLION INTERNATIONAL UNIT, QD;
     Route: 065
     Dates: start: 20230825, end: 20230827
  62. ALDESLEUKIN [Suspect]
     Active Substance: ALDESLEUKIN
     Indication: Metastatic malignant melanoma
     Dosage: 1.86 MILLION INTERNATIONAL UNIT, QD;
     Route: 065
     Dates: start: 20230822, end: 20230824
  63. MORPHINE SULFATE [Concomitant]
     Active Substance: MORPHINE SULFATE
     Indication: Pain
     Dosage: 60 MG, BID, DURATION: 126 DAYS
     Route: 050
     Dates: start: 20230411, end: 20230814
  64. MORPHINE SULFATE [Concomitant]
     Active Substance: MORPHINE SULFATE
     Indication: Pain
     Dosage: 70 MG, BID, DURATION: 32 DAYS
     Route: 050
     Dates: start: 20230814, end: 20230914
  65. POLYETHYLENE GLYCOL 3350\POTASSIUM CHLORIDE\SODIUM BICARBONATE\SODIUM [Concomitant]
     Active Substance: POLYETHYLENE GLYCOL 3350\POTASSIUM CHLORIDE\SODIUM BICARBONATE\SODIUM CHLORIDE
     Indication: Constipation
     Dosage: 1 SACHET;
     Dates: start: 20230118
  66. POLYETHYLENE GLYCOL 3350\POTASSIUM CHLORIDE\SODIUM BICARBONATE\SODIUM [Concomitant]
     Active Substance: POLYETHYLENE GLYCOL 3350\POTASSIUM CHLORIDE\SODIUM BICARBONATE\SODIUM CHLORIDE
     Indication: Constipation
     Dosage: 1 DOSAGE FORM (1 SACHET)
     Route: 050
     Dates: start: 20230118
  67. CLARITHROMYCIN [Concomitant]
     Active Substance: CLARITHROMYCIN
     Indication: Prophylaxis
     Dosage: 1500 MG, TIW
     Route: 050
     Dates: start: 20230830
  68. ENOXAPARIN [Concomitant]
     Active Substance: ENOXAPARIN
     Indication: Deep vein thrombosis
     Dosage: 100 MG;
     Route: 050
     Dates: start: 20230816, end: 20230821
  69. ENOXAPARIN [Concomitant]
     Active Substance: ENOXAPARIN
     Indication: Deep vein thrombosis
     Dosage: 40 MG, QD
     Route: 050
     Dates: start: 20230902, end: 20230902
  70. ENOXAPARIN [Concomitant]
     Active Substance: ENOXAPARIN
     Indication: Deep vein thrombosis
     Dosage: 100 MG, QD
     Route: 050
     Dates: start: 20230831, end: 20230831
  71. ENOXAPARIN [Concomitant]
     Active Substance: ENOXAPARIN
     Indication: Deep vein thrombosis
     Dosage: 100 MG, QD
     Route: 050
     Dates: start: 20230904, end: 20230909
  72. ENOXAPARIN [Concomitant]
     Active Substance: ENOXAPARIN
     Indication: Deep vein thrombosis
     Dosage: UNK (60, 80 MG)
     Route: 050
     Dates: start: 20230822, end: 20230830
  73. PHOSPHATE ION [Concomitant]
     Active Substance: PHOSPHATE ION
     Indication: Blood phosphorus decreased
     Dosage: TIME INTERVAL: 0.33333333 DAYS: 32.2 MMOL, TID
     Dates: start: 20230823, end: 20230824
  74. LEVETIRACETAM [Concomitant]
     Active Substance: LEVETIRACETAM
     Indication: Seizure prophylaxis
     Dosage: 1000 MG, BID
     Route: 050
     Dates: start: 20230906, end: 20230921
  75. LEVETIRACETAM [Concomitant]
     Active Substance: LEVETIRACETAM
     Indication: Seizure prophylaxis
     Dosage: 500 MG, BID
     Route: 050
     Dates: start: 20230824, end: 20230906
  76. LEVETIRACETAM [Concomitant]
     Active Substance: LEVETIRACETAM
     Indication: Seizure prophylaxis
     Dosage: 1000 MG, BID
     Dates: start: 20230906, end: 20230921
  77. ACETAMINOPHEN [Concomitant]
     Active Substance: ACETAMINOPHEN
     Indication: Analgesic therapy
     Dosage: 4 GM (1 GM,4 IN 1 D)
     Route: 050
     Dates: start: 20220303
  78. NYSTATIN [Concomitant]
     Active Substance: NYSTATIN
     Indication: Oral candidiasis
     Dosage: 1000,000 UNITS, DURATION: 8 DAYS
     Route: 050
     Dates: start: 20230823, end: 20230830
  79. NYSTATIN [Concomitant]
     Active Substance: NYSTATIN
     Indication: Oral candidiasis
     Dosage: 1000,000 UNITS;
     Dates: start: 20230823, end: 20230830
  80. DOXAZOSIN [Concomitant]
     Active Substance: DOXAZOSIN MESYLATE
     Indication: Hypertension
     Dosage: TIME INTERVAL: 0.33333333 DAYS: 2 MG, TID, DURATION: 14 DAYS
     Route: 050
     Dates: start: 20230907, end: 20230920
  81. FAMOTIDINE [Concomitant]
     Active Substance: FAMOTIDINE
     Indication: Gastrooesophageal reflux disease
     Dosage: 20 MG, QD
     Route: 050
     Dates: start: 20230818, end: 20230910
  82. METOCLOPRAMIDE [Concomitant]
     Active Substance: METOCLOPRAMIDE
     Indication: Nausea
     Dosage: TIME INTERVAL: 0.33333333 DAYS: 10 MG, TID
     Route: 050
     Dates: start: 20230701, end: 20230915
  83. HUMAN BLOOD [Concomitant]
     Indication: Platelet count decreased
     Dosage: 1 POOL ONCE; ;
     Dates: start: 20230830, end: 20230830
  84. HUMAN BLOOD [Concomitant]
     Indication: Platelet count decreased
     Dosage: 1 POOL ONCE; ;
     Dates: start: 20230907, end: 20230907
  85. HUMAN BLOOD [Concomitant]
     Indication: Platelet count decreased
     Dosage: 1 POOL ONCE; ;
     Dates: start: 20230909, end: 20230909
  86. HUMAN BLOOD [Concomitant]
     Indication: Platelet count decreased
     Dosage: 2 POOLS ONCE; ;
     Dates: start: 20230831, end: 20230831
  87. HUMAN BLOOD [Concomitant]
     Indication: Platelet count decreased
     Dosage: 1 POOL ONCE; ;
     Dates: start: 20230829, end: 20230829
  88. HUMAN BLOOD [Concomitant]
     Indication: Platelet count decreased
     Dosage: 1 POOL ONCE; ;
     Dates: start: 20230906, end: 20230906
  89. HUMAN BLOOD [Concomitant]
     Indication: Platelet count decreased
     Dosage: 1 POOL ONCE; ;
     Dates: start: 20230901, end: 20230901
  90. HUMAN BLOOD [Concomitant]
     Indication: Platelet count decreased
     Dosage: 1 POOL ONCE; ;
     Dates: start: 20230908, end: 20230908
  91. HUMAN BLOOD [Concomitant]
     Indication: Platelet count decreased
     Dosage: 1 POOL ONCE; ;
     Dates: start: 20230907, end: 20230907
  92. HUMAN BLOOD [Concomitant]
     Indication: Platelet count decreased
     Dosage: 1 POOL ONCE; ;
     Dates: start: 20230909, end: 20230909
  93. SODIUM PHOSPHATE, MONOBASIC [Concomitant]
     Active Substance: SODIUM PHOSPHATE, MONOBASIC
     Indication: Blood phosphorus decreased
     Dosage: TIME INTERVAL: 0.33333333 DAYS: 32.2 MMOL, TID, DURATION: 2 DAYS
     Route: 050
     Dates: start: 20230823, end: 20230824
  94. CYCLOPHOSPHAMIDE [Suspect]
     Active Substance: CYCLOPHOSPHAMIDE
     Indication: Metastatic malignant melanoma
     Dosage: 550 MG, QD, DURATION: 3 DAYS
     Route: 050
     Dates: start: 20230816, end: 20230818

REACTIONS (5)
  - Cerebrovascular accident [Fatal]
  - Immune effector cell-associated neurotoxicity syndrome [Recovering/Resolving]
  - Hypoxia [Unknown]
  - Cytokine release syndrome [Unknown]
  - Pneumonia aspiration [Fatal]

NARRATIVE: CASE EVENT DATE: 20230824
